FAERS Safety Report 5241095-5 (Version None)
Quarter: 2007Q1

REPORT INFORMATION
  Report Type: 
  Country: None (occurrence: None)
  Receive Date: 20070220
  Receipt Date: 20070206
  Transmission Date: 20070707
  Serious: Yes (Other)
  Sender: FDA-Public Use
  Company Number: US-JNJFOC-20070201722

PATIENT
  Sex: Female

DRUGS (3)
  1. BLINDED; INFLIXIMAB, RECOMBINANT [Suspect]
     Dosage: FINAL INFUSION OF BLINDED STUDY MEDICATION
     Route: 042
  2. BLINDED; INFLIXIMAB, RECOMBINANT [Suspect]
     Indication: LUNG DISORDER
     Route: 042
  3. PREDNISONE [Concomitant]

REACTIONS (4)
  - FEELING ABNORMAL [None]
  - LUNG DISORDER [None]
  - SINUSITIS [None]
  - TACHYCARDIA [None]
